FAERS Safety Report 9321681 (Version 1)
Quarter: 2013Q2

REPORT INFORMATION
  Report Type: Spontaneous
  Country: US (occurrence: US)
  Receive Date: 20130531
  Receipt Date: 20130531
  Transmission Date: 20140414
  Serious: Yes (Hospitalization)
  Sender: FDA-Public Use
  Company Number: US-JNJFOC-20130515765

PATIENT
  Sex: Female

DRUGS (1)
  1. XARELTO [Suspect]
     Indication: DEEP VEIN THROMBOSIS
     Dosage: 15 MG TWICE DAILY (AM) AND 20 MG ONCE A DAY (PM) BOTH WERE INITIATED SIMULTANEOUSLY
     Route: 048

REACTIONS (2)
  - Overdose [Not Recovered/Not Resolved]
  - Mental disorder [Unknown]
